FAERS Safety Report 13500172 (Version 2)
Quarter: 2017Q2

REPORT INFORMATION
  Report Type: Spontaneous
  Country: CZ (occurrence: CZ)
  Receive Date: 20170501
  Receipt Date: 20170628
  Transmission Date: 20170830
  Serious: Yes (Hospitalization, Other)
  Sender: FDA-Public Use
  Company Number: CZ-APOTEX-2017AP011316

PATIENT
  Age: 63 Year
  Sex: Male

DRUGS (1)
  1. APO-METFORMIN 500 MG [Suspect]
     Active Substance: METFORMIN HYDROCHLORIDE
     Indication: TYPE 2 DIABETES MELLITUS
     Dosage: UNK
     Route: 065

REACTIONS (11)
  - Multiple organ dysfunction syndrome [Recovered/Resolved]
  - Dysbacteriosis [Recovered/Resolved]
  - Ventricular fibrillation [Recovered/Resolved]
  - Shock [Recovered/Resolved]
  - Respiratory tract infection [Recovered/Resolved]
  - Cardiac arrest [Recovered/Resolved]
  - Gastroenteritis [Unknown]
  - Optic ischaemic neuropathy [Unknown]
  - Urinary tract infection [Recovered/Resolved]
  - Drug level increased [Recovered/Resolved]
  - Lactic acidosis [Recovered/Resolved]
